FAERS Safety Report 4987089-6 (Version None)
Quarter: 2006Q2

REPORT INFORMATION
  Report Type: 
  Country: None (occurrence: None)
  Receive Date: 20060501
  Receipt Date: 20060420
  Transmission Date: 20061013
  Serious: Yes (Other)
  Sender: FDA-Public Use
  Company Number: RU-GLAXOSMITHKLINE-B0421678A

PATIENT
  Age: 58 Year
  Sex: Female

DRUGS (1)
  1. SEREVENT [Suspect]
     Route: 055
     Dates: start: 20051130, end: 20051205

REACTIONS (5)
  - ARRHYTHMIA [None]
  - ASTHENIA [None]
  - CONVULSION [None]
  - COUGH [None]
  - NAUSEA [None]
